FAERS Safety Report 4492227-8 (Version None)
Quarter: 2004Q4

REPORT INFORMATION
  Report Type: 
  Country: None (occurrence: None)
  Receive Date: 20041101
  Receipt Date: 20041027
  Transmission Date: 20050328
  Serious: Yes (Life-Threatening)
  Sender: FDA-Public Use
  Company Number: 430078K04USA

PATIENT
  Sex: Male

DRUGS (3)
  1. NOVANTRONE [Suspect]
     Indication: MULTIPLE SCLEROSIS
     Dosage: 1 IN 3 MONTHS
     Dates: start: 20021027
  2. MS CONTIN [Concomitant]
  3. PERCOCET [Concomitant]

REACTIONS (3)
  - DEPRESSION [None]
  - PAIN [None]
  - SUICIDE ATTEMPT [None]
